FAERS Safety Report 5168248-9 (Version None)
Quarter: 2006Q4

REPORT INFORMATION
  Report Type: 
  Country: None (occurrence: None)
  Receive Date: 20061208
  Receipt Date: 20061206
  Transmission Date: 20070319
  Serious: Yes (Hospitalization)
  Sender: FDA-Public Use
  Company Number: AT-GLAXOSMITHKLINE-B0449804A

PATIENT
  Age: 81 Year
  Sex: Female

DRUGS (2)
  1. ARIXTRA [Suspect]
     Indication: SURGERY
     Dosage: 2.5MG PER DAY
     Route: 065
     Dates: start: 20061130, end: 20061205
  2. LOVENOX [Concomitant]
     Indication: DRUG USE FOR UNKNOWN INDICATION
     Dosage: 80MG TWICE PER DAY
     Route: 065

REACTIONS (2)
  - DYSPNOEA [None]
  - PULMONARY EMBOLISM [None]
